FAERS Safety Report 6138856 (Version 33)
Quarter: 2013Q3

REPORT INFORMATION
  Report Type: Spontaneous
  Country: US (occurrence: US)
  Receive Date: 20060929
  Receipt Date: 20130806
  Transmission Date: 20140515
  Serious: Yes (Hospitalization, Other)
  Sender: FDA-Public Use
  Company Number: PHEH2006US11913

PATIENT
  Age: 58 Year
  Sex: Female
  Weight: 70.3 kg

DRUGS (49)
  1. AREDIA [Suspect]
     Dates: start: 1999, end: 2001
  2. ZOMETA [Suspect]
     Dates: start: 2001, end: 2005
  3. DILAUDID [Concomitant]
  4. NEURONTIN [Concomitant]
  5. GLIPIZIDE [Concomitant]
  6. INSULIN [Concomitant]
  7. PLAVIX [Concomitant]
  8. LISINOPRIL [Concomitant]
  9. ARANESP [Concomitant]
  10. TAXOL [Concomitant]
  11. TAXOTERE [Concomitant]
  12. MORPHINE [Concomitant]
     Dosage: 1 MG
  13. MORPHINE [Concomitant]
     Dosage: 5 MG/ML, UNK
  14. MORPHINE [Concomitant]
     Dosage: 6 MG, UNK
  15. MSIR [Concomitant]
     Dosage: 30 MG
  16. TYLENOL [Concomitant]
     Dosage: 650 MG
  17. METHADONE [Concomitant]
  18. COMPAZINE [Concomitant]
     Dosage: 10 MG
  19. LASIX [Concomitant]
  20. KLOR-CON [Concomitant]
  21. SPIRONOLACTONE [Concomitant]
  22. COREG [Concomitant]
  23. GABAPENTIN [Concomitant]
  24. LORATADINE [Concomitant]
  25. XALATAN [Concomitant]
  26. OXYCONTIN [Concomitant]
  27. ALPHAGAN P [Concomitant]
  28. ENALAPRIL [Concomitant]
  29. AMARYL [Concomitant]
  30. PERCOCET [Concomitant]
  31. BYETTA [Concomitant]
  32. CLARITIN [Concomitant]
  33. ALDACTONE [Concomitant]
  34. NITRO-BID [Concomitant]
  35. ACTOS                                   /USA/ [Concomitant]
  36. DIAMOX                                  /CAN/ [Concomitant]
  37. EPINEPHRINE [Concomitant]
  38. VANCOMYCIN [Concomitant]
  39. MOXIFLOXACIN [Concomitant]
  40. ECONOPRED [Concomitant]
  41. AVANDIA [Concomitant]
  42. COMBIVENT                               /GFR/ [Concomitant]
  43. HYDROCODONE [Concomitant]
  44. BIMATOPROST [Concomitant]
  45. DOCUSATE [Concomitant]
  46. CYCLOBENZAPRINE [Concomitant]
  47. NYSTATIN [Concomitant]
  48. NOVOLOG [Concomitant]
  49. LANTUS [Concomitant]

REACTIONS (118)
  - Chest pain [Unknown]
  - Osteonecrosis of jaw [Unknown]
  - Dizziness [Unknown]
  - Pain [Unknown]
  - Deformity [Unknown]
  - Hypophagia [Unknown]
  - Emotional distress [Unknown]
  - Anxiety [Unknown]
  - Osteomyelitis [Unknown]
  - Life expectancy shortened [Unknown]
  - Toothache [Unknown]
  - General physical health deterioration [Unknown]
  - Decreased interest [Unknown]
  - Pulmonary mass [Unknown]
  - Glaucoma [Unknown]
  - Peripheral vascular disorder [Unknown]
  - Onychomycosis [Unknown]
  - Visual acuity reduced [Unknown]
  - Goitre [Unknown]
  - Vasodilatation [Unknown]
  - Thrombosis [Unknown]
  - Carotid bruit [Unknown]
  - Pleural effusion [Unknown]
  - Lung infiltration [Unknown]
  - Hepatic lesion [Unknown]
  - Renal disorder [Unknown]
  - Diverticulum intestinal [Unknown]
  - Tracheal deviation [Unknown]
  - Bone loss [Unknown]
  - Pneumonia [Unknown]
  - Cholelithiasis [Unknown]
  - Atelectasis [Unknown]
  - Cholecystitis [Unknown]
  - Hepatitis [Unknown]
  - Diabetic neuropathy [Unknown]
  - Dyspnoea [Unknown]
  - Gallbladder disorder [Unknown]
  - Musculoskeletal chest pain [Unknown]
  - Abdominal pain upper [Unknown]
  - Pigmentation disorder [Unknown]
  - Onychoclasis [Unknown]
  - Exostosis [Unknown]
  - Oral disorder [Unknown]
  - Alpha haemolytic streptococcal infection [Unknown]
  - Mucosal ulceration [Unknown]
  - Mucosal inflammation [Unknown]
  - Limb injury [Unknown]
  - Ligament sprain [Unknown]
  - Fall [Unknown]
  - Spinal column injury [Unknown]
  - Contusion [Unknown]
  - Rib fracture [Unknown]
  - Visual field defect [Unknown]
  - Staphyloma [Unknown]
  - Retinal haemorrhage [Unknown]
  - Photopsia [Unknown]
  - Vitreous floaters [Unknown]
  - Syncope [Unknown]
  - Bronchitis chronic [Unknown]
  - Thyroid neoplasm [Unknown]
  - Lung consolidation [Unknown]
  - Nephrogenic anaemia [Unknown]
  - Serum ferritin increased [Unknown]
  - Blood iron decreased [Unknown]
  - Renal failure acute [Unknown]
  - Hyperkalaemia [Recovered/Resolved]
  - Diabetic retinopathy [Unknown]
  - Urinary tract infection [Unknown]
  - Cardiac failure congestive [Unknown]
  - Supraventricular extrasystoles [Unknown]
  - Vomiting [Recovered/Resolved]
  - Myalgia [Unknown]
  - Gait disturbance [Unknown]
  - Varicose vein [Unknown]
  - Azotaemia [Unknown]
  - Asthenia [Unknown]
  - Faecaloma [Unknown]
  - Constipation [Unknown]
  - Abdominal pain [Unknown]
  - Bladder disorder [Unknown]
  - Hypokalaemia [Recovered/Resolved]
  - Vertebral artery occlusion [Unknown]
  - Osteoarthritis [Unknown]
  - Arteriosclerosis coronary artery [Unknown]
  - Aortic calcification [Unknown]
  - Cervical spinal stenosis [Unknown]
  - Arthropathy [Unknown]
  - Spondylolisthesis [Unknown]
  - Scoliosis [Unknown]
  - Sinus polyp [Unknown]
  - Metastases to spine [Unknown]
  - Macular degeneration [Unknown]
  - Hypovolaemia [Unknown]
  - Gout [Unknown]
  - Blindness unilateral [Unknown]
  - Haemorrhoids [Unknown]
  - Colon adenoma [Unknown]
  - Dysplasia [Unknown]
  - Large intestine polyp [Unknown]
  - Cellulitis [Unknown]
  - Fungal infection [Unknown]
  - Mass [Unknown]
  - Peripheral arterial occlusive disease [Unknown]
  - Hypertension [Unknown]
  - Iron deficiency anaemia [Unknown]
  - Diabetic nephropathy [Unknown]
  - Joint effusion [Unknown]
  - Intervertebral disc protrusion [Unknown]
  - Intervertebral disc space narrowing [Unknown]
  - Nerve root compression [Unknown]
  - Memory impairment [Unknown]
  - Peripheral artery stenosis [Unknown]
  - Bone cyst [Unknown]
  - Pain in jaw [Unknown]
  - Hyperkeratosis [Unknown]
  - Foot deformity [Unknown]
  - Arthralgia [Unknown]
  - Vision blurred [Unknown]
